FAERS Safety Report 6346884-1 (Version None)
Quarter: 2009Q3

REPORT INFORMATION
  Report Type: 
  Country: None (occurrence: None)
  Receive Date: 20090908
  Receipt Date: 20090908
  Transmission Date: 20100115
  Serious: Yes (Hospitalization, Other)
  Sender: FDA-Public Use
  Company Number: None

PATIENT
  Age: 57 Year
  Sex: Female
  Weight: 71.6683 kg

DRUGS (1)
  1. MOBIC [Suspect]
     Indication: ARTHRITIS
     Dosage: 15MG ONCE A DAY
     Dates: start: 20040101, end: 20090101

REACTIONS (2)
  - CHEST PAIN [None]
  - GASTROINTESTINAL ULCER [None]
